FAERS Safety Report 5787710-9 (Version None)
Quarter: 2008Q2

REPORT INFORMATION
  Report Type: 
  Country: None (occurrence: None)
  Receive Date: 20080625
  Receipt Date: 20071003
  Transmission Date: 20081010
  Serious: No
  Sender: FDA-Public Use
  Company Number: US-ASTRAZENECA-2007UW23016

PATIENT
  Age: 26373 Day
  Sex: Female
  Weight: 59.1 kg

DRUGS (5)
  1. PULMICORT-100 [Suspect]
     Route: 055
  2. XOPENEX [Suspect]
     Indication: CHRONIC OBSTRUCTIVE PULMONARY DISEASE
     Dosage: 1.25 MG / 3 ML ONCE
     Route: 055
     Dates: start: 20070815, end: 20070815
  3. OXYGEN [Concomitant]
  4. DIGOXIN [Concomitant]
  5. BENICAR [Concomitant]

REACTIONS (2)
  - DYSPNOEA [None]
  - MEDICATION ERROR [None]
